FAERS Safety Report 12559008 (Version 3)
Quarter: 2016Q3

REPORT INFORMATION
  Report Type: Spontaneous
  Country: GB (occurrence: GB)
  Receive Date: 20160715
  Receipt Date: 20160818
  Transmission Date: 20161109
  Serious: Yes (Other)
  Sender: FDA-Public Use
  Company Number: GB-JNJFOC-20160708357

PATIENT
  Sex: Female

DRUGS (2)
  1. REGAINE FOR WOMEN ONCE A DAY SCALP FOAM 5% W/W CUTANEOUS FOAM [Suspect]
     Active Substance: MINOXIDIL
     Route: 065
  2. REGAINE FOR WOMEN ONCE A DAY SCALP FOAM 5% W/W CUTANEOUS FOAM [Suspect]
     Active Substance: MINOXIDIL
     Indication: ALOPECIA
     Route: 065

REACTIONS (2)
  - Hypersensitivity [Unknown]
  - Dermatitis [Unknown]
